FAERS Safety Report 15839828 (Version 3)
Quarter: 2019Q1

REPORT INFORMATION
  Report Type: Spontaneous
  Country: PT (occurrence: PT)
  Receive Date: 20190117
  Receipt Date: 20190305
  Transmission Date: 20190417
  Serious: Yes (Life-Threatening, Hospitalization, Other)
  Sender: FDA-Public Use
  Company Number: PT-GILEAD-2018-0378368

PATIENT
  Age: 51 Year
  Sex: Male
  Weight: 61 kg

DRUGS (8)
  1. VALACICLOVIR [Concomitant]
     Active Substance: VALACYCLOVIR HYDROCHLORIDE
     Dosage: UNK
     Dates: start: 20170701, end: 20181126
  2. ZYDELIG [Suspect]
     Active Substance: IDELALISIB
     Indication: B-CELL LYMPHOMA
     Dosage: 300 MG
     Route: 065
     Dates: start: 20170807, end: 20181126
  3. RITUXIMAB. [Concomitant]
     Active Substance: RITUXIMAB
  4. ESHAP [Concomitant]
     Active Substance: CISPLATIN\CYTARABINE\ETOPOSIDE\METHYLPREDNISOLONE (ESHAP)
  5. COTRIMOXAZOLE [Concomitant]
     Active Substance: SULFAMETHOXAZOLE\TRIMETHOPRIM
     Dosage: UNK
     Dates: start: 20170701, end: 20181126
  6. COTRIMOXAZOLE [Concomitant]
     Active Substance: SULFAMETHOXAZOLE\TRIMETHOPRIM
     Dosage: UNK
     Dates: start: 20181127
  7. BACTRIM [Concomitant]
     Active Substance: SULFAMETHOXAZOLE\TRIMETHOPRIM
  8. CHOP [Concomitant]
     Active Substance: CYCLOPHOSPHAMIDE\DOXORUBICIN\PREDNISONE\VINCRISTINE

REACTIONS (7)
  - Acute respiratory distress syndrome [Recovered/Resolved]
  - Pneumocystis jirovecii infection [Unknown]
  - B-cell lymphoma [Not Recovered/Not Resolved]
  - Pneumonia pseudomonal [Recovered/Resolved]
  - Platelet count abnormal [Not Recovered/Not Resolved]
  - Upper respiratory tract infection [Recovered/Resolved]
  - Upper respiratory tract infection [Unknown]

NARRATIVE: CASE EVENT DATE: 201806
